FAERS Safety Report 25803603 (Version 1)
Quarter: 2025Q3

REPORT INFORMATION
  Report Type: Report from Study
  Country: KR (occurrence: KR)
  Receive Date: 20250915
  Receipt Date: 20250915
  Transmission Date: 20251020
  Serious: Yes (Other)
  Sender: TAKEDA
  Company Number: KR-TAKEDA-2025TUS079533

PATIENT
  Age: 45 Year
  Sex: Male
  Weight: 103.3 kg

DRUGS (6)
  1. VEDOLIZUMAB [Suspect]
     Active Substance: VEDOLIZUMAB
     Indication: Crohn^s disease
  2. FEBUXOSTAT [Concomitant]
     Active Substance: FEBUXOSTAT
     Indication: Gout
     Dosage: 80 MILLIGRAM, QD
     Dates: start: 20191119
  3. CELEBREX [Concomitant]
     Active Substance: CELECOXIB
     Indication: Gout
  4. Admin Forte [Concomitant]
     Indication: Vitamin supplementation
     Dosage: UNK UNK, QD
     Dates: start: 20210217, end: 20221018
  5. Admin Forte [Concomitant]
     Dosage: UNK UNK, QD
     Dates: start: 20221019
  6. AZATHIOPRINE [Concomitant]
     Active Substance: AZATHIOPRINE
     Dosage: 50 MILLIGRAM, QD
     Dates: start: 20210217, end: 20221018

REACTIONS (1)
  - Metabolic dysfunction-associated steatohepatitis [Recovering/Resolving]

NARRATIVE: CASE EVENT DATE: 20230208
